FAERS Safety Report 15722229 (Version 1)
Quarter: 2018Q4

REPORT INFORMATION
  Report Type: Spontaneous
  Country: CN (occurrence: CN)
  Receive Date: 20181214
  Receipt Date: 20181214
  Transmission Date: 20190205
  Serious: Yes (Other)
  Sender: FDA-Public Use
  Company Number: CN-GLAXOSMITHKLINE-CN2018GSK223406

PATIENT
  Age: 47 Year
  Sex: Male
  Weight: 100 kg

DRUGS (4)
  1. BELLADONNA [Suspect]
     Active Substance: ATROPA BELLADONNA\HOMEOPATHICS
     Indication: DIARRHOEA
     Dosage: 50 MG, UNK
     Route: 048
  2. ESTAZOLAM. [Suspect]
     Active Substance: ESTAZOLAM
     Indication: EPILEPSY
     Dosage: 2 DF TABLET, BID
     Route: 048
     Dates: start: 2016
  3. LAMICTAL [Suspect]
     Active Substance: LAMOTRIGINE
     Indication: EPILEPSY
     Dosage: UNK
     Route: 048
     Dates: start: 2016
  4. NORFLOXACIN [Suspect]
     Active Substance: NORFLOXACIN
     Indication: DIARRHOEA
     Dosage: 2 DF PELLET, BID
     Route: 048

REACTIONS (4)
  - Disease recurrence [Recovered/Resolved]
  - Diarrhoea [Recovering/Resolving]
  - Discomfort [Unknown]
  - Wrong technique in product usage process [Unknown]
